FAERS Safety Report 24794758 (Version 1)
Quarter: 2024Q4

REPORT INFORMATION
  Report Type: Spontaneous
  Country: US (occurrence: US)
  Receive Date: 20241231
  Receipt Date: 20241231
  Transmission Date: 20250115
  Serious: Yes (Other)
  Sender: AVADEL CNS PHARMACEUTICALS, LLC
  Company Number: US-AVADEL CNS PHARMACEUTICALS, LLC-2024AVA02502

PATIENT
  Sex: Female

DRUGS (2)
  1. LUMRYZ [Suspect]
     Active Substance: SODIUM OXYBATE
     Dosage: 4.5 G, ONCE NIGHTLY
     Dates: start: 20241204, end: 20241204
  2. LUMRYZ [Suspect]
     Active Substance: SODIUM OXYBATE
     Dosage: ^3 G^
     Dates: start: 202412

REACTIONS (5)
  - Syncope [Unknown]
  - Illness [Unknown]
  - Cough [Unknown]
  - Nasopharyngitis [Unknown]
  - Wrong technique in product usage process [Not Recovered/Not Resolved]

NARRATIVE: CASE EVENT DATE: 20241201
